FAERS Safety Report 6711572-6 (Version None)
Quarter: 2010Q2

REPORT INFORMATION
  Report Type: 
  Country: None (occurrence: None)
  Receive Date: 20100505
  Receipt Date: 20100423
  Transmission Date: 20101027
  Serious: Yes (Other)
  Sender: FDA-Public Use
  Company Number: PHHY2010JP10326

PATIENT
  Age: 80 Year
  Sex: Female

DRUGS (1)
  1. NEORAL [Suspect]
     Indication: INTERSTITIAL LUNG DISEASE
     Dosage: 120 MG DAILY
     Route: 048
     Dates: start: 20080825, end: 20100326

REACTIONS (2)
  - DEMENTIA [None]
  - HYPOACUSIS [None]
